FAERS Safety Report 6902997-4 (Version None)
Quarter: 2010Q3

REPORT INFORMATION
  Report Type: 
  Country: None (occurrence: None)
  Receive Date: 20100803
  Receipt Date: 20081104
  Transmission Date: 20110219
  Serious: No
  Sender: FDA-Public Use
  Company Number: US-PFIZER INC-2008046699

PATIENT
  Sex: Female
  Weight: 45.4 kg

DRUGS (21)
  1. LYRICA [Suspect]
     Indication: FIBROMYALGIA
     Route: 048
     Dates: start: 20080324
  2. LYRICA [Suspect]
     Indication: POST HERPETIC NEURALGIA
  3. LYRICA [Suspect]
     Indication: HERPES ZOSTER
  4. ALL OTHER THERAPEUTIC PRODUCTS [Concomitant]
  5. HYDROXYZINE [Concomitant]
  6. PREVACID [Concomitant]
  7. PREMARIN [Concomitant]
  8. CYMBALTA [Concomitant]
  9. ZOLOFT [Concomitant]
  10. DALMANE [Concomitant]
  11. DIAZEPAM [Concomitant]
  12. SKELAXIN [Concomitant]
  13. FOLIC ACID [Concomitant]
  14. ASACOL [Concomitant]
  15. VALTREX [Concomitant]
  16. COMBIVENT [Concomitant]
  17. PROMETHAZINE [Concomitant]
  18. DARVOCET [Concomitant]
  19. MIDRIN [Concomitant]
  20. VISTARIL [Concomitant]
  21. SERTRALINE HYDROCHLORIDE [Concomitant]

REACTIONS (4)
  - AMPHETAMINES POSITIVE [None]
  - DRUG INEFFECTIVE [None]
  - INSOMNIA [None]
  - OEDEMA PERIPHERAL [None]
